FAERS Safety Report 14216355 (Version 1)
Quarter: 2017Q4

REPORT INFORMATION
  Report Type: Spontaneous
  Country: US (occurrence: US)
  Receive Date: 20171122
  Receipt Date: 20171122
  Transmission Date: 20180321
  Serious: Yes (Other)
  Sender: FDA-Public Use
  Company Number: US-PTC THERAPEUTICS, INC.-US-2017PTC001470

PATIENT

DRUGS (1)
  1. EMFLAZA [Suspect]
     Active Substance: DEFLAZACORT
     Indication: DUCHENNE MUSCULAR DYSTROPHY
     Dosage: 16 MG, QD
     Route: 048
     Dates: start: 20170915

REACTIONS (4)
  - Rectal haemorrhage [Unknown]
  - Laceration [Unknown]
  - Haematochezia [Unknown]
  - Hypotension [Unknown]

NARRATIVE: CASE EVENT DATE: 20171111
